FAERS Safety Report 4362146-6 (Version None)
Quarter: 2004Q2

REPORT INFORMATION
  Report Type: 
  Country: None (occurrence: None)
  Receive Date: 20040517
  Receipt Date: 20040503
  Transmission Date: 20050107
  Serious: No
  Sender: FDA-Public Use
  Company Number: TPA2004A00285

PATIENT
  Age: 65 Year
  Sex: Female

DRUGS (9)
  1. ACTOS [Suspect]
     Indication: DIABETES MELLITUS
     Dosage: 30 MG, 1 IN 1 D, PER ORAL
     Route: 048
     Dates: end: 20020701
  2. INSULIN (INSULIN  /N/A/) [Concomitant]
  3. AMARYL [Concomitant]
  4. HUMALOG PEN (INSUIN LISPRO) [Concomitant]
  5. LANTUS [Concomitant]
  6. COZAAR [Concomitant]
  7. LIPITOR [Concomitant]
  8. LEVOXYL [Concomitant]
  9. NEURONTIN [Concomitant]

REACTIONS (4)
  - ANEURYSM [None]
  - HYPERTENSION [None]
  - MACULAR OEDEMA [None]
  - WEIGHT INCREASED [None]
